FAERS Safety Report 9375303 (Version 2)
Quarter: 2013Q3

REPORT INFORMATION
  Report Type: Spontaneous
  Country: FR (occurrence: FR)
  Receive Date: 20130628
  Receipt Date: 20130917
  Transmission Date: 20140515
  Serious: Yes (Other)
  Sender: FDA-Public Use
  Company Number: FR-TEVA-415758ISR

PATIENT
  Age: 91 Year
  Sex: Male

DRUGS (2)
  1. FUROSEMIDE TEVA 40 MG [Suspect]
     Dosage: 1 DOSAGE FORMS DAILY;
     Dates: end: 20130531
  2. FUROSEMIDE TEVA 40 MG [Suspect]
     Dosage: 1.5 DOSAGE FORMS DAILY;
     Dates: start: 20130531

REACTIONS (5)
  - Cardiac failure [Unknown]
  - Dysstasia [Unknown]
  - Disorientation [Unknown]
  - Malaise [Unknown]
  - Dementia [Unknown]
